FAERS Safety Report 4323945-X (Version None)
Quarter: 2004Q1

REPORT INFORMATION
  Report Type: 
  Country: None (occurrence: None)
  Receive Date: 20040323
  Receipt Date: 20040308
  Transmission Date: 20041129
  Serious: Yes (Life-Threatening)
  Sender: FDA-Public Use
  Company Number: 2004-BP-01376NB

PATIENT
  Age: 65 Year
  Sex: Male

DRUGS (3)
  1. MICARDIS [Suspect]
     Indication: HYPERTENSION
     Dosage: 20 MG (20 MG) PO
     Route: 048
     Dates: start: 20040115, end: 20040208
  2. VASOLAN (VERAPAMIL HYDROCHLORIDE) (TA) [Concomitant]
  3. FLUITRAN (TRICHLORMENTHIAZIDE) (TA) [Concomitant]

REACTIONS (4)
  - ARRHYTHMIA [None]
  - CHEST PAIN [None]
  - NEURALGIA [None]
  - PALLOR [None]
